FAERS Safety Report 13300735 (Version 3)
Quarter: 2019Q1

REPORT INFORMATION
  Report Type: Spontaneous
  Country: NL (occurrence: NL)
  Receive Date: 20170307
  Receipt Date: 20190103
  Transmission Date: 20190417
  Serious: Yes (Other)
  Sender: FDA-Public Use
  Company Number: NL-SUN PHARMACEUTICAL INDUSTRIES LTD-2017R1-135045

PATIENT
  Sex: Female

DRUGS (2)
  1. CLOZAPINE. [Suspect]
     Active Substance: CLOZAPINE
     Indication: PSYCHOTIC DISORDER
     Dosage: INCREASE THE DOSAGE WITH 50 OR 100 MG/DAY FOR A CERTAIN PERIOD DAILY
     Route: 065
  2. CLOZAPINE. [Suspect]
     Active Substance: CLOZAPINE
     Dosage: MAINTENANCE DOSE OF 350 MG
     Route: 065

REACTIONS (2)
  - Obesity [Unknown]
  - Type 2 diabetes mellitus [Unknown]
